FAERS Safety Report 24838571 (Version 1)
Quarter: 2025Q1

REPORT INFORMATION
  Report Type: Spontaneous
  Country: US (occurrence: US)
  Receive Date: 20250113
  Receipt Date: 20250113
  Transmission Date: 20250409
  Serious: Yes (Death, Life-Threatening, Hospitalization, Other)
  Sender: COVIS PHARMA GMBH
  Company Number: US-Covis Pharma GmbH-2025COV00009

PATIENT
  Age: 79 Year
  Sex: Male

DRUGS (1)
  1. FERAHEME [Suspect]
     Active Substance: FERUMOXYTOL NON-STOICHIOMETRIC MAGNETITE
     Dates: start: 20241231

REACTIONS (5)
  - Malaise [Fatal]
  - Unresponsive to stimuli [Fatal]
  - Agonal respiration [Fatal]
  - Pulse abnormal [Fatal]
  - Pulse absent [Fatal]

NARRATIVE: CASE EVENT DATE: 20241231
